FAERS Safety Report 7494688-9 (Version None)
Quarter: 2011Q2

REPORT INFORMATION
  Report Type: 
  Country: None (occurrence: None)
  Receive Date: 20110520
  Receipt Date: 20110509
  Transmission Date: 20111010
  Serious: Yes (Death)
  Sender: FDA-Public Use
  Company Number: JP-NOVOPROD-327436

PATIENT
  Age: 21 Year
  Sex: Female

DRUGS (1)
  1. NORDITROPIN [Suspect]
     Dosage: UNK
     Route: 065

REACTIONS (1)
  - AORTIC DISSECTION [None]
